FAERS Safety Report 7594022-X (Version None)
Quarter: 2011Q3

REPORT INFORMATION
  Report Type: 
  Country: None (occurrence: None)
  Receive Date: 20110706
  Receipt Date: 20110704
  Transmission Date: 20111222
  Serious: Yes (Life-Threatening, Hospitalization)
  Sender: FDA-Public Use
  Company Number: JP-BAYER-2011-055661

PATIENT
  Age: 76 Year
  Sex: Male

DRUGS (4)
  1. DILTIAZEM HYDROCHLORIDE [Interacting]
     Route: 048
  2. ADALAT CC [Suspect]
     Indication: HYPERTENSION
     Route: 048
  3. FLECAINIDE ACETATE [Interacting]
     Route: 048
  4. CIPRALAN [Interacting]
     Route: 048

REACTIONS (10)
  - BRADYCARDIA [None]
  - NO THERAPEUTIC RESPONSE [None]
  - RENAL IMPAIRMENT [None]
  - DIALYSIS [None]
  - ASTHMA [None]
  - ILEUS [None]
  - HYPOTENSION [None]
  - MEDICATION ERROR [None]
  - CARDIAC ARREST [None]
  - INCORRECT DOSE ADMINISTERED [None]
